FAERS Safety Report 7141434-4 (Version None)
Quarter: 2010Q4

REPORT INFORMATION
  Report Type: 
  Country: None (occurrence: None)
  Receive Date: 20101203
  Receipt Date: 20101203
  Transmission Date: 20110411
  Serious: No
  Sender: FDA-Public Use
  Company Number: None

PATIENT
  Age: 61 Year
  Sex: Male
  Weight: 136.0791 kg

DRUGS (1)
  1. PROPOXYPHENE HYDROCHLORIDE [Suspect]
     Indication: ARTHRALGIA
     Dosage: 2 TABLETS ONCE DAILY
     Dates: start: 20070601, end: 20101119

REACTIONS (1)
  - HEART RATE IRREGULAR [None]
